FAERS Safety Report 6646089-0 (Version None)
Quarter: 2010Q1

REPORT INFORMATION
  Report Type: 
  Country: None (occurrence: None)
  Receive Date: 20100323
  Receipt Date: 20100319
  Transmission Date: 20100710
  Serious: Yes (Death, Hospitalization)
  Sender: FDA-Public Use
  Company Number: PHHY2010SE17043

PATIENT
  Sex: Female
  Weight: 63 kg

DRUGS (1)
  1. ICL670A ICL+ [Suspect]
     Indication: SERUM FERRITIN INCREASED
     Dosage: 2000 MG, UNK
     Route: 048
     Dates: start: 20090312, end: 20091121

REACTIONS (7)
  - ABDOMINAL PAIN [None]
  - CARDIAC FAILURE [None]
  - DIVERTICULAR PERFORATION [None]
  - PERITONITIS [None]
  - PYREXIA [None]
  - RENAL FAILURE [None]
  - SIGMOIDECTOMY [None]
